FAERS Safety Report 6414853-9 (Version None)
Quarter: 2009Q4

REPORT INFORMATION
  Report Type: 
  Country: None (occurrence: None)
  Receive Date: 20091026
  Receipt Date: 20081124
  Transmission Date: 20100525
  Serious: No
  Sender: FDA-Public Use
  Company Number: US-ABBOTT-08P-163-0489540-00

PATIENT
  Sex: Female
  Weight: 59.02 kg

DRUGS (2)
  1. LUPRON DEPOT [Suspect]
     Indication: ADENOMYOSIS
     Route: 050
     Dates: start: 20080904
  2. COMBIGAN [Concomitant]
     Indication: GLAUCOMA

REACTIONS (4)
  - AMNESIA [None]
  - EYE PAIN [None]
  - HEADACHE [None]
  - NAUSEA [None]
